FAERS Safety Report 15855070 (Version 1)
Quarter: 2019Q1

REPORT INFORMATION
  Report Type: Report from Study
  Country: US (occurrence: US)
  Receive Date: 20190122
  Receipt Date: 20190122
  Transmission Date: 20190417
  Serious: No
  Sender: FDA-Public Use
  Company Number: PHEH2019US003004

PATIENT
  Sex: Female

DRUGS (1)
  1. ENTRESTO [Suspect]
     Active Substance: SACUBITRIL\VALSARTAN
     Indication: PATERNAL EXPOSURE DURING PREGNANCY
     Dosage: FOETAL EXPOSURE VIA PARTNER: NOT REPORTED
     Route: 065

REACTIONS (1)
  - Exposure via partner [Unknown]
